FAERS Safety Report 6748405-8 (Version None)
Quarter: 2010Q2

REPORT INFORMATION
  Report Type: 
  Country: None (occurrence: None)
  Receive Date: 20100525
  Receipt Date: 20100129
  Transmission Date: 20101027
  Serious: Yes (Hospitalization, Disabling, Other)
  Sender: FDA-Public Use
  Company Number: WAES 1002USA00051

PATIENT
  Sex: Female
  Weight: 96.1626 kg

DRUGS (11)
  1. COZAAR [Suspect]
     Indication: HYPERTENSION
     Dosage: 25 MG/DAILY/PO
     Route: 048
     Dates: start: 20071108, end: 20100112
  2. COZAAR [Suspect]
     Indication: PROTEINURIA
     Dosage: 25 MG/DAILY/PO
     Route: 048
     Dates: start: 20071108, end: 20100112
  3. PRINIVIL [Suspect]
     Dosage: 20/12 MG/BID/PO
     Route: 048
  4. CENTRUM SILVER [Concomitant]
  5. HECTOROL [Concomitant]
  6. ZOCOR [Concomitant]
  7. ATENOLOL [Concomitant]
  8. FELDOIPINE [Concomitant]
  9. GLUCOSAMINE [Concomitant]
  10. HYDROCHLOROTHIAZIDE [Concomitant]
  11. VITAMIN D (UNSPECIFIED) [Concomitant]

REACTIONS (2)
  - ANGIOEDEMA [None]
  - HYPERSENSITIVITY [None]
